FAERS Safety Report 21573938 (Version 10)
Quarter: 2023Q1

REPORT INFORMATION
  Report Type: Report from Study
  Country: CN (occurrence: None)
  Receive Date: 20221109
  Receipt Date: 20230316
  Transmission Date: 20230418
  Serious: Yes (Hospitalization)
  Sender: FDA-Public Use
  Company Number: CN-Eisai Medical Research-EC-2022-127468

PATIENT
  Age: 70 Year
  Sex: Male
  Weight: 62 kg

DRUGS (13)
  1. LENVATINIB [Suspect]
     Active Substance: LENVATINIB
     Indication: Oesophageal cancer metastatic
     Dosage: STARTING DOSE: 8 MG, FLUCTUATED DOSAGE
     Route: 048
     Dates: start: 20220916, end: 20221101
  2. PEMBROLIZUMAB [Suspect]
     Active Substance: PEMBROLIZUMAB
     Indication: Oesophageal cancer metastatic
     Route: 041
     Dates: start: 20220916, end: 20220916
  3. PEMBROLIZUMAB [Suspect]
     Active Substance: PEMBROLIZUMAB
     Route: 041
     Dates: start: 20230110
  4. PACLITAXEL [Suspect]
     Active Substance: PACLITAXEL
     Indication: Oesophageal cancer metastatic
     Dosage: FOR 4 CYCLES
     Route: 042
     Dates: start: 20220916, end: 20221013
  5. PACLITAXEL [Suspect]
     Active Substance: PACLITAXEL
     Dosage: FOR 4 CYCLES
     Route: 042
     Dates: start: 20230110, end: 20230110
  6. CISPLATIN [Suspect]
     Active Substance: CISPLATIN
     Indication: Oesophageal cancer metastatic
     Dosage: FOR 4 CYCLES
     Route: 042
     Dates: start: 20220917, end: 20221013
  7. CISPLATIN [Suspect]
     Active Substance: CISPLATIN
     Dosage: FOR 4 CYCLES
     Route: 042
     Dates: start: 20220110, end: 20230110
  8. LYRICA [Concomitant]
     Active Substance: PREGABALIN
     Dates: start: 20221002, end: 20221103
  9. KANG FU XIN [Concomitant]
     Dates: start: 20220926, end: 20221102
  10. XI PA YI GU YIN [Concomitant]
     Dates: start: 20220930, end: 20221031
  11. FERROUS SUCCINATE [Concomitant]
     Active Substance: FERROUS SUCCINATE
     Dates: start: 20221026, end: 20221103
  12. CELEBREX [Concomitant]
     Active Substance: CELECOXIB
     Dates: start: 20220930, end: 20221103
  13. ESTAZOLAM [Concomitant]
     Active Substance: ESTAZOLAM
     Dates: start: 20220930, end: 20221103

REACTIONS (1)
  - Oesophageal fistula [Recovered/Resolved]

NARRATIVE: CASE EVENT DATE: 20221101
